FAERS Safety Report 8943709 (Version 1)
Quarter: 2012Q4

REPORT INFORMATION
  Report Type: 
  Country: US (occurrence: US)
  Receive Date: 20121203
  Receipt Date: 20121203
  Transmission Date: 20130627
  Serious: Yes (Life-Threatening, Hospitalization)
  Sender: FDA-Public Use
  Company Number: US-GLAXOSMITHKLINE-A0732016A

PATIENT
  Age: 54 Year
  Sex: Female

DRUGS (2)
  1. ROSIGLITAZONE MALEATE [Suspect]
     Indication: TYPE 2 DIABETES MELLITUS
     Route: 048
     Dates: start: 200306, end: 200705
  2. AVANDIA [Suspect]
     Indication: DIABETES MELLITUS
     Dosage: 4MG per day
     Route: 048
     Dates: start: 1999, end: 20070601

REACTIONS (2)
  - Myocardial infarction [Not Recovered/Not Resolved]
  - Coronary artery disease [Unknown]
